FAERS Safety Report 25957620 (Version 2)
Quarter: 2025Q4

REPORT INFORMATION
  Report Type: Report from Study
  Country: US (occurrence: US)
  Receive Date: 20251024
  Receipt Date: 20251229
  Transmission Date: 20260118
  Serious: Yes (Other)
  Sender: NOVARTIS
  Company Number: US-002147023-NVSC2025US138764

PATIENT
  Age: 7 Year
  Sex: Male

DRUGS (3)
  1. ILARIS [Suspect]
     Active Substance: CANAKINUMAB
     Indication: Juvenile idiopathic arthritis
     Dosage: 100 MG, QMO
     Route: 058
     Dates: start: 20250807
  2. ILARIS [Suspect]
     Active Substance: CANAKINUMAB
     Dosage: 1 MG, QMO
     Route: 003
  3. ILARIS [Suspect]
     Active Substance: CANAKINUMAB
     Dosage: 1.35 MG, QMO
     Route: 003

REACTIONS (4)
  - Systemic lupus erythematosus [Not Recovered/Not Resolved]
  - Illness [Unknown]
  - Alopecia [Not Recovered/Not Resolved]
  - Skin lesion [Not Recovered/Not Resolved]

NARRATIVE: CASE EVENT DATE: 20250825
